FAERS Safety Report 7826486-8 (Version None)
Quarter: 2011Q4

REPORT INFORMATION
  Report Type: 
  Country: None (occurrence: None)
  Receive Date: 20111020
  Receipt Date: 20111019
  Transmission Date: 20120403
  Serious: Yes (Other)
  Sender: FDA-Public Use
  Company Number: US-CEPHALON-2009008783

PATIENT
  Sex: Male
  Weight: 74 kg

DRUGS (5)
  1. ACTIQ [Suspect]
     Indication: ROAD TRAFFIC ACCIDENT
     Route: 002
     Dates: start: 20030301
  2. FENTANYL [Concomitant]
     Indication: NERVE INJURY
     Dates: start: 20030301
  3. ULTRAM [Concomitant]
     Dates: start: 20080101
  4. XANAX [Concomitant]
     Dates: start: 19880101
  5. ACTIQ [Suspect]
     Indication: NERVE INJURY
     Route: 002
     Dates: start: 20030301

REACTIONS (12)
  - LEUKOPLAKIA ORAL [None]
  - LOOSE TOOTH [None]
  - TOOTH EXTRACTION [None]
  - PERIODONTAL DISEASE [None]
  - ORAL PAIN [None]
  - INFECTION [None]
  - DRUG PRESCRIBING ERROR [None]
  - DENTAL CARIES [None]
  - TOOTH DISORDER [None]
  - TOOTH ABSCESS [None]
  - DENTURE WEARER [None]
  - TOOTH FRACTURE [None]
